FAERS Safety Report 7228253-5 (Version None)
Quarter: 2011Q1

REPORT INFORMATION
  Report Type: 
  Country: None (occurrence: None)
  Receive Date: 20110114
  Receipt Date: 20110112
  Transmission Date: 20110831
  Serious: Yes (Other)
  Sender: FDA-Public Use
  Company Number: US-AMGEN-USASP2011002080

PATIENT

DRUGS (2)
  1. CYCLOBENZAPRINE [Concomitant]
  2. PROLIA [Suspect]
     Indication: OSTEOPOROSIS POSTMENOPAUSAL
     Dosage: 60 MG, Q6MO
     Dates: start: 20101119

REACTIONS (3)
  - LOSS OF CONSCIOUSNESS [None]
  - MOBILITY DECREASED [None]
  - ARTHRALGIA [None]
